FAERS Safety Report 7704123-0 (Version None)
Quarter: 2011Q3

REPORT INFORMATION
  Report Type: 
  Country: None (occurrence: None)
  Receive Date: 20110818
  Receipt Date: 20110805
  Transmission Date: 20111222
  Serious: Yes (Hospitalization, Other)
  Sender: FDA-Public Use
  Company Number: JPI-P-009250

PATIENT
  Age: 58 Year
  Sex: Female
  Weight: 56.6996 kg

DRUGS (5)
  1. OMEPRAZOLE [Concomitant]
  2. XYREM [Suspect]
     Indication: SLEEP DISORDER
     Dosage: 4.5 GM (2.25 GM, 2 IN 1 D), ORAL 9 GM (4.5 GM, 2 IN 1 D), ORAL
     Route: 048
     Dates: start: 20041213
  3. XYREM [Suspect]
     Indication: SLEEP DISORDER
     Dosage: 4.5 GM (2.25 GM, 2 IN 1 D), ORAL 9 GM (4.5 GM, 2 IN 1 D), ORAL
     Route: 048
     Dates: start: 20091030, end: 20101001
  4. DULOXETIME HYDROCHLORIDE [Concomitant]
  5. PAIN MEDICATIONS, UNSPECIFIED [Concomitant]

REACTIONS (6)
  - SPINAL COLUMN STENOSIS [None]
  - WRIST FRACTURE [None]
  - SOMNAMBULISM [None]
  - CONDITION AGGRAVATED [None]
  - SCOLIOSIS [None]
  - FALL [None]
